FAERS Safety Report 6544965-0 (Version None)
Quarter: 2010Q1

REPORT INFORMATION
  Report Type: 
  Country: None (occurrence: None)
  Receive Date: 20100121
  Receipt Date: 20100119
  Transmission Date: 20100710
  Serious: Yes (Hospitalization)
  Sender: FDA-Public Use
  Company Number: IT-ROCHE-680244

PATIENT
  Age: 44 Year
  Sex: Female

DRUGS (1)
  1. AVASTIN [Suspect]
     Indication: BREAST CANCER
     Route: 042
     Dates: start: 20081119, end: 20090713

REACTIONS (4)
  - DIPLOPIA [None]
  - HEADACHE [None]
  - HYPERTENSION [None]
  - MONONEURITIS [None]
